FAERS Safety Report 12434729 (Version 1)
Quarter: 2016Q2

REPORT INFORMATION
  Report Type: Report from Study
  Country: NL (occurrence: NL)
  Receive Date: 20160603
  Receipt Date: 20160603
  Transmission Date: 20160815
  Serious: Yes (Death)
  Sender: FDA-Public Use
  Company Number: NL-ABBVIE-16P-114-1643089-00

PATIENT
  Age: 86 Year
  Sex: Female

DRUGS (1)
  1. DUODOPA [Suspect]
     Active Substance: CARBIDOPA\LEVODOPA
     Indication: PARKINSON^S DISEASE
     Dosage: MORNING 4.4, CONTINUOUS 1.5, EXTRA 0.5
     Route: 050
     Dates: start: 20111117, end: 20160531

REACTIONS (1)
  - Death [Fatal]

NARRATIVE: CASE EVENT DATE: 20160531
